FAERS Safety Report 22315423 (Version 1)
Quarter: 2023Q2

REPORT INFORMATION
  Report Type: Spontaneous
  Country: US (occurrence: None)
  Receive Date: 20230511
  Receipt Date: 20230511
  Transmission Date: 20230722
  Serious: Yes (Hospitalization)
  Sender: FDA-Public Use
  Company Number: None

PATIENT
  Sex: Female

DRUGS (3)
  1. OPSUMIT [Suspect]
     Active Substance: MACITENTAN
     Indication: Pulmonary arterial hypertension
     Dosage: 10MG DAILY PO?
     Route: 048
     Dates: start: 202211
  2. TADALAFIL [Suspect]
     Active Substance: TADALAFIL
  3. TREPROSTINIL [Suspect]
     Active Substance: TREPROSTINIL

REACTIONS (2)
  - Localised infection [None]
  - Pain in extremity [None]
